FAERS Safety Report 15654650 (Version 1)
Quarter: 2018Q4

REPORT INFORMATION
  Report Type: Report from Study
  Country: CA (occurrence: CA)
  Receive Date: 20181126
  Receipt Date: 20181126
  Transmission Date: 20190205
  Serious: Yes (Hospitalization)
  Sender: FDA-Public Use
  Company Number: CA-ROCHE-2204023

PATIENT
  Age: 74 Year
  Sex: Female

DRUGS (6)
  1. ESBRIET [Suspect]
     Active Substance: PIRFENIDONE
     Indication: IDIOPATHIC PULMONARY FIBROSIS
     Dosage: SUSPENDED
     Route: 048
     Dates: start: 20181004, end: 2018
  2. VITAMIN B12 [Concomitant]
     Active Substance: CYANOCOBALAMIN
  3. AMILORIDE [Concomitant]
     Active Substance: AMILORIDE
  4. ATACAND [Concomitant]
     Active Substance: CANDESARTAN CILEXETIL
  5. ESBRIET [Suspect]
     Active Substance: PIRFENIDONE
     Route: 048
     Dates: start: 201810
  6. SYNTHROID [Concomitant]
     Active Substance: LEVOTHYROXINE SODIUM

REACTIONS (15)
  - Dehydration [Unknown]
  - Immunodeficiency [Unknown]
  - Fatigue [Not Recovered/Not Resolved]
  - Loss of consciousness [Unknown]
  - Dyspepsia [Unknown]
  - Cough [Unknown]
  - Headache [Unknown]
  - Chest discomfort [Unknown]
  - Seizure [Unknown]
  - Hypotension [Not Recovered/Not Resolved]
  - Infection [Unknown]
  - Chills [Unknown]
  - Constipation [Recovered/Resolved]
  - Meningitis viral [Unknown]
  - Asthenia [Unknown]

NARRATIVE: CASE EVENT DATE: 201810
